FAERS Safety Report 10103477 (Version 2)
Quarter: 2014Q2

REPORT INFORMATION
  Report Type: Spontaneous
  Country: US (occurrence: US)
  Receive Date: 20140424
  Receipt Date: 20140620
  Transmission Date: 20141212
  Serious: No
  Sender: FDA-Public Use
  Company Number: US-BRISTOL-MYERS SQUIBB COMPANY-20410056

PATIENT
  Age: 66 Year
  Sex: Male

DRUGS (5)
  1. ELIQUIS [Suspect]
     Indication: ATRIAL FIBRILLATION
     Route: 048
     Dates: start: 2008
  2. ELIQUIS [Suspect]
     Indication: CEREBROVASCULAR ACCIDENT PROPHYLAXIS
     Route: 048
     Dates: start: 2008
  3. ZOLOFT [Concomitant]
  4. PRAVACOL [Concomitant]
  5. TOPROL XL [Concomitant]

REACTIONS (1)
  - Diverticulitis [Unknown]
